FAERS Safety Report 24527810 (Version 1)
Quarter: 2024Q4

REPORT INFORMATION
  Report Type: Spontaneous
  Country: US (occurrence: US)
  Receive Date: 20241021
  Receipt Date: 20241021
  Transmission Date: 20250114
  Serious: No
  Sender: AMGEN
  Company Number: US-AMGEN-USASP2024206438

PATIENT

DRUGS (4)
  1. PREDNISONE [Suspect]
     Active Substance: PREDNISONE
     Indication: Philadelphia positive acute lymphocytic leukaemia
     Dosage: 60 MILLIGRAM/SQ. METER MAXIMUM 120 MG DAILY) ON DAYS 1 THROUGH 24
     Route: 065
  2. PREDNISONE [Suspect]
     Active Substance: PREDNISONE
     Dosage: UNK,TAPERED THROUGH DAY 32.
     Route: 065
  3. ASCIMINIB [Concomitant]
     Active Substance: ASCIMINIB
     Dosage: 80 MILLIGRAM, QD (DL2)
     Route: 065
  4. DASATINIB [Concomitant]
     Active Substance: DASATINIB
     Dosage: 140 MILLIGRAM, QD (IN CONSECUTIVE 28-DAY CYCLES)

REACTIONS (1)
  - Pancreatic enzymes increased [Unknown]
